FAERS Safety Report 9830978 (Version 1)
Quarter: 2014Q1

REPORT INFORMATION
  Report Type: Report from Study
  Country: AR (occurrence: AR)
  Receive Date: 20140120
  Receipt Date: 20140120
  Transmission Date: 20141002
  Serious: Yes (Hospitalization, Other)
  Sender: FDA-Public Use
  Company Number: PHHY2014AR005860

PATIENT
  Sex: Male

DRUGS (2)
  1. ONBREZ [Suspect]
     Indication: OBSTRUCTIVE AIRWAYS DISORDER
     Dosage: UNK UKN, DAILY
     Route: 055
     Dates: start: 201311, end: 201311
  2. ONBREZ [Suspect]
     Indication: OFF LABEL USE

REACTIONS (3)
  - Joint dislocation [Recovering/Resolving]
  - Muscle contracture [Recovering/Resolving]
  - Asthenia [Recovering/Resolving]
